FAERS Safety Report 21508189 (Version 1)
Quarter: 2022Q4

REPORT INFORMATION
  Report Type: Spontaneous
  Country: US (occurrence: US)
  Receive Date: 20221026
  Receipt Date: 20221026
  Transmission Date: 20230113
  Serious: Yes (Hospitalization)
  Sender: FDA-Public Use
  Company Number: US-MYLANLABS-2022M1117831

PATIENT
  Age: 77 Year
  Sex: Male

DRUGS (1)
  1. FONDAPARINUX SODIUM [Suspect]
     Active Substance: FONDAPARINUX SODIUM
     Indication: COVID-19
     Dosage: 2.5 MILLIGRAM, QD
     Route: 058

REACTIONS (1)
  - Off label use [Unknown]
